FAERS Safety Report 21688941 (Version 1)
Quarter: 2022Q4

REPORT INFORMATION
  Report Type: Spontaneous
  Country: US (occurrence: None)
  Receive Date: 20221205
  Receipt Date: 20221205
  Transmission Date: 20230112
  Serious: Yes (Disabling)
  Sender: FDA-Public Use
  Company Number: None

PATIENT
  Age: 71 Year
  Sex: Female
  Weight: 67.5 kg

DRUGS (25)
  1. VENLAFAXINE [Suspect]
     Active Substance: VENLAFAXINE HYDROCHLORIDE
     Indication: Depression
     Dosage: FREQUENCY : DAILY;?
     Route: 048
     Dates: start: 20221116, end: 20221203
  2. Venlafaxine ER (Effexor) [Concomitant]
  3. Trazadone HCL [Concomitant]
  4. BENZONATATE [Concomitant]
     Active Substance: BENZONATATE
  5. LIVALO [Concomitant]
     Active Substance: PITAVASTATIN CALCIUM
  6. Voltaren Gel Topical [Concomitant]
  7. CELEBREX [Concomitant]
     Active Substance: CELECOXIB
  8. ESTRADIOL [Concomitant]
     Active Substance: ESTRADIOL
  9. OMEGA 3 [Concomitant]
     Active Substance: CAPSAICIN
  10. Algae-Cal Plant [Concomitant]
  11. CALCIUM [Concomitant]
     Active Substance: CALCIUM
  12. MAGNESIUM [Concomitant]
     Active Substance: MAGNESIUM
  13. BORON [Concomitant]
     Active Substance: BORON
  14. VITAMIN D3 [Concomitant]
     Active Substance: CHOLECALCIFEROL
  15. METHYLCOBALAMIN [Concomitant]
     Active Substance: METHYLCOBALAMIN
  16. VITAMIN B12 [Concomitant]
     Active Substance: CYANOCOBALAMIN
  17. iFerex Poly-Iron [Concomitant]
  18. VITAMIN C [Concomitant]
     Active Substance: ASCORBIC ACID
  19. Organic Apple Cider Vinegar [Concomitant]
  20. VITAMIN B COMPLEX [Concomitant]
     Active Substance: CYANOCOBALAMIN\DEXPANTHENOL\NIACINAMIDE\PYRIDOXINE HYDROCHLORIDE\RIBOFLAVIN 5^-PHOSPHATE SODIUM\THIA
  21. TYLENOL [Concomitant]
     Active Substance: ACETAMINOPHEN
  22. IBUPROFEN [Concomitant]
     Active Substance: IBUPROFEN
  23. SIMETHICONE (DIMETHICONE) [Concomitant]
     Active Substance: DIMETHICONE
  24. Beano (Alpha-galactosidase) [Concomitant]
  25. SALONPAS PAIN RELIEF [Concomitant]
     Active Substance: MENTHOL\METHYL SALICYLATE

REACTIONS (4)
  - Product quality issue [None]
  - Anxiety [None]
  - Panic attack [None]
  - Loss of personal independence in daily activities [None]

NARRATIVE: CASE EVENT DATE: 20221116
